FAERS Safety Report 6719593-4 (Version None)
Quarter: 2010Q2

REPORT INFORMATION
  Report Type: 
  Country: None (occurrence: None)
  Receive Date: 20100510
  Receipt Date: 20100510
  Transmission Date: 20101027
  Serious: No
  Sender: FDA-Public Use
  Company Number: None

PATIENT
  Age: 48 Year
  Sex: Male
  Weight: 77.1115 kg

DRUGS (1)
  1. SIMVASTATIN [Suspect]
     Indication: BLOOD CHOLESTEROL ABNORMAL
     Dosage: 40MG HS PO
     Route: 048
     Dates: start: 20100101, end: 20100401

REACTIONS (1)
  - UNEVALUABLE EVENT [None]
